FAERS Safety Report 19623340 (Version 1)
Quarter: 2021Q3

REPORT INFORMATION
  Report Type: Spontaneous
  Country: FR (occurrence: FR)
  Receive Date: 20210729
  Receipt Date: 20210729
  Transmission Date: 20211014
  Serious: Yes (Hospitalization)
  Sender: FDA-Public Use
  Company Number: FR-LUNDBECK-DKLU3036083

PATIENT
  Age: 24 Year
  Sex: Female

DRUGS (1)
  1. URBANYL [Suspect]
     Active Substance: CLOBAZAM
     Indication: EPILEPSY
     Dosage: 105 MG, QD
     Route: 048
     Dates: start: 20210613, end: 20210615

REACTIONS (2)
  - Product prescribing error [Recovered/Resolved]
  - Somnolence [Recovered/Resolved]
